FAERS Safety Report 20098146 (Version 1)
Quarter: 2021Q4

REPORT INFORMATION
  Report Type: Spontaneous
  Country: BR (occurrence: None)
  Receive Date: 20211122
  Receipt Date: 20211122
  Transmission Date: 20220304
  Serious: Yes (Hospitalization, Other)
  Sender: FDA-Public Use
  Company Number: 2021A821453

PATIENT
  Sex: Male

DRUGS (1)
  1. LYNPARZA [Suspect]
     Active Substance: OLAPARIB
     Dosage: 150 MG150.0MG UNKNOWN
     Route: 048

REACTIONS (5)
  - Metastasis [Not Recovered/Not Resolved]
  - Intestinal haemorrhage [Unknown]
  - Anal fissure haemorrhage [Unknown]
  - Liver disorder [Not Recovered/Not Resolved]
  - Gastric disorder [Not Recovered/Not Resolved]
